FAERS Safety Report 23472342 (Version 1)
Quarter: 2024Q1

REPORT INFORMATION
  Report Type: Spontaneous
  Country: US (occurrence: None)
  Receive Date: 20240202
  Receipt Date: 20240202
  Transmission Date: 20240410
  Serious: Yes (Death, Hospitalization)
  Sender: FDA-Public Use
  Company Number: None

PATIENT
  Age: 78 Year
  Sex: Female
  Weight: 59.4 kg

DRUGS (4)
  1. TRUQAP [Suspect]
     Active Substance: CAPIVASERTIB
     Indication: Breast cancer stage IV
     Dosage: OTHER QUANTITY : 1 TABLET(S);?FREQUENCY : TWICE A DAY;?
     Route: 048
     Dates: start: 20240115, end: 20240118
  2. FULVESTRANT [Suspect]
     Active Substance: FULVESTRANT
  3. KISQALI [Suspect]
     Active Substance: RIBOCICLIB
  4. IBRANCE [Suspect]
     Active Substance: PALBOCICLIB

REACTIONS (9)
  - Drug hypersensitivity [None]
  - Breast mass [None]
  - Loss of therapeutic response [None]
  - Drug ineffective [None]
  - Decreased appetite [None]
  - Blood glucose increased [None]
  - Blood sodium decreased [None]
  - Shock [None]
  - Multiple organ dysfunction syndrome [None]

NARRATIVE: CASE EVENT DATE: 20240118
